FAERS Safety Report 8509274 (Version 5)
Quarter: 2012Q4

REPORT INFORMATION
  Report Type: 
  Country: AT (occurrence: AT)
  Receive Date: 20120412
  Receipt Date: 20121016
  Transmission Date: 20130627
  Serious: Yes (Hospitalization)
  Sender: FDA-Public Use
  Company Number: AT-BAXTER-2012BAX001271

PATIENT
  Age: 26 Year
  Sex: Female

DRUGS (2)
  1. SODIUM CHLORIDE [Suspect]
     Indication: PLASMAPHERESIS
     Route: 042
     Dates: start: 20120326, end: 20120326
  2. SODIUM CITRATE [Suspect]
     Indication: ANTICOAGULANT THERAPY
     Route: 042
     Dates: start: 20120326, end: 20120326

REACTIONS (2)
  - Syncope [Recovered/Resolved]
  - Hypersensitivity [None]
